FAERS Safety Report 5315485-6 (Version None)
Quarter: 2007Q2

REPORT INFORMATION
  Report Type: 
  Country: None (occurrence: None)
  Receive Date: 20070503
  Receipt Date: 20070501
  Transmission Date: 20071010
  Serious: Yes (Hospitalization)
  Sender: FDA-Public Use
  Company Number: LB-BRISTOL-MYERS SQUIBB COMPANY-13766522

PATIENT
  Age: 61 Year
  Sex: Male

DRUGS (2)
  1. HYDROXYCARBAMIDE [Suspect]
     Indication: CHRONIC MYELOMONOCYTIC LEUKAEMIA
  2. ALLOPURINOL [Suspect]

REACTIONS (1)
  - TUMOUR LYSIS SYNDROME [None]
